FAERS Safety Report 13538859 (Version 1)
Quarter: 2017Q2

REPORT INFORMATION
  Report Type: Spontaneous
  Country: US (occurrence: US)
  Receive Date: 20170512
  Receipt Date: 20170512
  Transmission Date: 20170830
  Serious: No
  Sender: FDA-Public Use
  Company Number: US-JNJFOC-20170330324

PATIENT
  Sex: Male
  Weight: 78.93 kg

DRUGS (1)
  1. INVEGA [Suspect]
     Active Substance: PALIPERIDONE
     Indication: SCHIZOPHRENIA
     Dosage: 9 MG IN THE MORNING AND 3 MG AT NIGHT
     Route: 048
     Dates: start: 2016, end: 2016

REACTIONS (2)
  - Feeling abnormal [Unknown]
  - Fatigue [Unknown]
